FAERS Safety Report 18345977 (Version 2)
Quarter: 2020Q4

REPORT INFORMATION
  Report Type: Spontaneous
  Country: US (occurrence: US)
  Receive Date: 20201005
  Receipt Date: 20201117
  Transmission Date: 20210114
  Serious: No
  Sender: FDA-Public Use
  Company Number: US-MERZ PHARMACEUTICALS GMBH-20-03474

PATIENT
  Age: 71 Year
  Sex: Female
  Weight: 62.6 kg

DRUGS (2)
  1. XEOMIN [Suspect]
     Active Substance: INCOBOTULINUMTOXINA
     Route: 030
     Dates: start: 201810, end: 2020
  2. XEOMIN [Suspect]
     Active Substance: INCOBOTULINUMTOXINA
     Indication: TORTICOLLIS
     Route: 030
     Dates: start: 20200811, end: 20200811

REACTIONS (2)
  - Joint dislocation [Unknown]
  - Neck pain [Unknown]

NARRATIVE: CASE EVENT DATE: 2020
